FAERS Safety Report 11394546 (Version 5)
Quarter: 2016Q1

REPORT INFORMATION
  Report Type: Report from Study
  Country: RU (occurrence: RU)
  Receive Date: 20150819
  Receipt Date: 20160111
  Transmission Date: 20160525
  Serious: Yes (Death, Life-Threatening, Disabling)
  Sender: FDA-Public Use
  Company Number: RU-ROCHE-1622295

PATIENT
  Age: 62 Year
  Sex: Female
  Weight: 77 kg

DRUGS (5)
  1. CAPECITABINE. [Suspect]
     Active Substance: CAPECITABINE
     Indication: ADENOCARCINOMA GASTRIC
     Dosage: THE LAST DOSE PRIOR TO THE MULTIORGAN FAILURE WAS ADMINISTERED ON 01/AUG/2015
     Route: 048
     Dates: start: 20150723
  2. ONDANSETRON [Concomitant]
     Active Substance: ONDANSETRON
     Route: 065
     Dates: start: 20150723, end: 20150724
  3. DEXAMETHASON [Concomitant]
     Active Substance: DEXAMETHASONE
     Route: 065
     Dates: start: 20150723, end: 20150731
  4. CISPLATIN. [Suspect]
     Active Substance: CISPLATIN
     Indication: ADENOCARCINOMA GASTRIC
     Dosage: THE LAST DOSE PRIOR TO THE DEATH NOS WAS ADMINISTERED ON 23/JUL/2015
     Route: 042
     Dates: start: 20150723
  5. APREPITANT. [Concomitant]
     Active Substance: APREPITANT
     Route: 065
     Dates: start: 20150623, end: 20150725

REACTIONS (1)
  - Multiple organ dysfunction syndrome [Fatal]

NARRATIVE: CASE EVENT DATE: 20150806
